FAERS Safety Report 14202114 (Version 2)
Quarter: 2018Q3

REPORT INFORMATION
  Report Type: Report from Study
  Country: US (occurrence: US)
  Receive Date: 20171117
  Receipt Date: 20180823
  Transmission Date: 20181010
  Serious: Yes (Hospitalization)
  Sender: FDA-Public Use
  Company Number: US-CELGENEUS-USA-20170704104

PATIENT
  Age: 80 Year
  Sex: Male
  Weight: 79.2 kg

DRUGS (57)
  1. METFORMIN [Concomitant]
     Active Substance: METFORMIN HYDROCHLORIDE
     Indication: DIABETES MELLITUS
     Dosage: 1000 MILLIGRAM
     Route: 048
     Dates: start: 20170118
  2. MULTIPLE VITAMINS [Concomitant]
     Active Substance: VITAMINS
     Indication: VITAMIN SUPPLEMENTATION
     Dosage: 1 TABLET
     Route: 048
     Dates: start: 20170118
  3. PYRIDOXINE HCL [Concomitant]
     Active Substance: PYRIDOXINE HYDROCHLORIDE
     Dosage: 20 MILLIGRAM
     Route: 048
     Dates: start: 20170118
  4. FLUCONAZOLE. [Concomitant]
     Active Substance: FLUCONAZOLE
     Indication: INFECTION PROPHYLAXIS
     Dosage: 200 MILLIGRAM
     Route: 048
     Dates: start: 20170309
  5. LIDODERM [Concomitant]
     Active Substance: LIDOCAINE
     Indication: BACK PAIN
     Route: 062
     Dates: start: 20170320
  6. LIDODERM [Concomitant]
     Active Substance: LIDOCAINE
     Dosage: 20 MILLIGRAM
     Route: 048
     Dates: start: 20170118
  7. MIRALAX [Concomitant]
     Active Substance: POLYETHYLENE GLYCOL 3350
     Indication: CONSTIPATION
     Route: 065
     Dates: start: 20170614
  8. MIRALAX [Concomitant]
     Active Substance: POLYETHYLENE GLYCOL 3350
     Dosage: 20 MILLIGRAM
     Route: 048
     Dates: start: 20170118
  9. BENZOCAINE?MENTHOL [Concomitant]
     Indication: OROPHARYNGEAL PAIN
     Dosage: 1
     Route: 065
     Dates: start: 20170810, end: 20170817
  10. DIAZEPAM. [Concomitant]
     Active Substance: DIAZEPAM
     Indication: PREMEDICATION
     Dosage: 5
     Route: 065
     Dates: start: 20170809, end: 20170809
  11. HYDROCORTISONE. [Concomitant]
     Active Substance: HYDROCORTISONE
     Indication: PRODUCT USED FOR UNKNOWN INDICATION
     Dosage: 100
     Route: 065
     Dates: start: 20170811, end: 20170814
  12. IMMUNE GLOBULIN [Concomitant]
     Active Substance: HUMAN IMMUNOGLOBULIN G
     Indication: PRODUCT USED FOR UNKNOWN INDICATION
     Dosage: 40
     Route: 065
     Dates: start: 20170811, end: 20170814
  13. LATANOPROST. [Concomitant]
     Active Substance: LATANOPROST
     Indication: GLAUCOMA
     Dosage: 1
     Route: 065
     Dates: start: 20170806, end: 20170816
  14. FOLIC ACID. [Concomitant]
     Active Substance: FOLIC ACID
     Indication: VITAMIN SUPPLEMENTATION
     Dosage: 1200 MICROGRAM
     Route: 048
     Dates: start: 20170407
  15. LUTEIN [Concomitant]
     Active Substance: LUTEIN
     Dosage: 20 MILLIGRAM
     Route: 048
     Dates: start: 20170118
  16. MULTIPLE VITAMINS [Concomitant]
     Active Substance: VITAMINS
     Dosage: 20 MILLIGRAM
     Route: 048
     Dates: start: 20170118
  17. BISACODYL. [Concomitant]
     Active Substance: BISACODYL
     Indication: CONSTIPATION
     Dosage: 20 MILLIGRAM
     Route: 054
  18. ALFUZOSIN [Concomitant]
     Active Substance: ALFUZOSIN
     Indication: HYPERTENSION
     Dosage: 10 MILLIGRAM
     Route: 048
     Dates: start: 20170118
  19. TURMERIC [Concomitant]
     Active Substance: HERBALS\TURMERIC
     Indication: SUPPLEMENTATION THERAPY
     Dosage: 500 MILLIGRAM
     Route: 048
     Dates: start: 20170118
  20. ENOXAPARIN [Concomitant]
     Active Substance: ENOXAPARIN
     Dosage: 40 MILLIGRAM
     Route: 065
     Dates: start: 20170809, end: 20170817
  21. SOLIFENACIN SUCCINATE. [Concomitant]
     Active Substance: SOLIFENACIN SUCCINATE
     Indication: MICTURITION URGENCY
     Dosage: 10 MILLIGRAM
     Route: 048
     Dates: start: 20170404
  22. RESVERATROL [Concomitant]
     Active Substance: DIETARY SUPPLEMENT\RESVERATROL
     Indication: SUPPLEMENTATION THERAPY
     Dosage: 100 MILLIGRAM
     Route: 048
     Dates: start: 20170118
  23. AG?221 [Suspect]
     Active Substance: ENASIDENIB
     Indication: ACUTE MYELOID LEUKAEMIA
     Dosage: 200 MILLIGRAM
     Route: 048
     Dates: start: 20170126, end: 20170711
  24. ASPIRIN. [Concomitant]
     Active Substance: ASPIRIN
     Indication: PROPHYLAXIS
     Dosage: 650
     Route: 048
     Dates: start: 20170202, end: 20170202
  25. ACYCLOVIR. [Concomitant]
     Active Substance: ACYCLOVIR
     Indication: INFECTION PROPHYLAXIS
     Dosage: 400 MILLIGRAM
     Route: 048
     Dates: start: 20170118
  26. BIOTIN [Concomitant]
     Active Substance: BIOTIN
     Indication: SUPPLEMENTATION THERAPY
     Route: 048
     Dates: start: 20170118
  27. PYRIDOXINE HCL [Concomitant]
     Active Substance: PYRIDOXINE HYDROCHLORIDE
     Indication: VITAMIN SUPPLEMENTATION
     Dosage: 100 MILLIGRAM
     Route: 048
     Dates: start: 20170118
  28. SELENIUM [Concomitant]
     Active Substance: SELENIUM
     Indication: SUPPLEMENTATION THERAPY
     Dosage: 600 MILLIGRAM
     Route: 048
     Dates: start: 20170118
  29. ALLOPURINOL. [Concomitant]
     Active Substance: ALLOPURINOL
     Indication: HYPERURICAEMIA
     Dosage: 300
     Route: 065
     Dates: start: 20170215
  30. MIRALAX [Concomitant]
     Active Substance: POLYETHYLENE GLYCOL 3350
     Dosage: 17
     Route: 065
     Dates: start: 20170804, end: 20170817
  31. DOCUSATE [Concomitant]
     Active Substance: DOCUSATE
     Indication: CONSTIPATION
     Dosage: 2
     Route: 065
     Dates: start: 20170803, end: 20170813
  32. POTASSIUM CHLORIDE. [Concomitant]
     Active Substance: POTASSIUM CHLORIDE
     Indication: PROPHYLAXIS
     Dosage: 40
     Route: 065
     Dates: start: 20170814, end: 20170814
  33. SELENIUM [Concomitant]
     Active Substance: SELENIUM
     Dosage: 20 MILLIGRAM
     Route: 048
     Dates: start: 20170118
  34. PREMARIN [Concomitant]
     Active Substance: ESTROGENS, CONJUGATED
     Indication: URINARY TRACT INFECTION
     Dosage: 12.8571 GRAM
     Route: 061
     Dates: start: 20170404
  35. SOLIFENACIN SUCCINATE. [Concomitant]
     Active Substance: SOLIFENACIN SUCCINATE
     Dosage: 20 MILLIGRAM
     Route: 048
     Dates: start: 20170118
  36. COLCHICINE. [Concomitant]
     Active Substance: COLCHICINE
     Indication: JOINT SWELLING
     Dosage: .6 MILLIGRAM
     Route: 048
     Dates: start: 20170517
  37. BARIUM SULFATE [Concomitant]
     Active Substance: BARIUM SULFATE
     Indication: COMPUTERISED TOMOGRAM
     Dosage: 450
     Route: 065
     Dates: start: 20170803, end: 20170803
  38. AMLODIPINE [Concomitant]
     Active Substance: AMLODIPINE BESYLATE
     Indication: HYPERTENSION
     Dosage: 10 MILLIGRAM
     Route: 048
     Dates: start: 20170118
  39. ENOXAPARIN [Concomitant]
     Active Substance: ENOXAPARIN
     Dosage: 40 MILLIGRAM
     Route: 058
     Dates: start: 20170306
  40. LIDODERM [Concomitant]
     Active Substance: LIDOCAINE
     Route: 062
     Dates: start: 20170718
  41. HEPARIN FLUSH [Concomitant]
     Active Substance: HEPARIN SODIUM
     Indication: PRODUCT USED FOR UNKNOWN INDICATION
     Dosage: 5
     Route: 065
     Dates: start: 20170811, end: 20170816
  42. ASPIRIN. [Concomitant]
     Active Substance: ASPIRIN
     Indication: DYSARTHRIA
     Dosage: 81 MILLIGRAM
     Route: 048
     Dates: start: 20170203
  43. CALCIUM CARBONATE. [Concomitant]
     Active Substance: CALCIUM CARBONATE
     Indication: VITAMIN SUPPLEMENTATION
     Route: 048
     Dates: start: 20170118
  44. VITAMIN B12 [Concomitant]
     Active Substance: CYANOCOBALAMIN
     Indication: VITAMIN SUPPLEMENTATION
     Dosage: 500 MICROGRAM
     Route: 048
     Dates: start: 20170118
  45. CARNITINE [Concomitant]
     Active Substance: CARNITINE
     Indication: VITAMIN SUPPLEMENTATION
     Dosage: 250 MILLIGRAM
     Route: 048
     Dates: start: 20170118
  46. ENOXAPARIN [Concomitant]
     Active Substance: ENOXAPARIN
     Indication: DEEP VEIN THROMBOSIS
     Dosage: 20 MILLIGRAM
     Route: 048
     Dates: start: 20170118
  47. FLUCONAZOLE. [Concomitant]
     Active Substance: FLUCONAZOLE
     Dosage: 20 MILLIGRAM
     Route: 048
     Dates: start: 20170118
  48. COLCHICINE. [Concomitant]
     Active Substance: COLCHICINE
     Dosage: 20 MILLIGRAM
     Route: 048
     Dates: start: 20170118
  49. KETOTIFEN [Concomitant]
     Active Substance: KETOTIFEN
     Indication: GLAUCOMA
     Dosage: 1
     Route: 047
     Dates: start: 20170806, end: 20170817
  50. AG?221 [Suspect]
     Active Substance: ENASIDENIB
     Dosage: 100 MILLIGRAM
     Route: 048
     Dates: start: 20170724
  51. LUTEIN [Concomitant]
     Active Substance: LUTEIN
     Indication: ANTIOXIDANT THERAPY
     Dosage: 20 MILLIGRAM
     Route: 048
     Dates: start: 20170118
  52. MULTIPLE VITAMINS [Concomitant]
     Active Substance: VITAMINS
     Dosage: 1
     Route: 065
     Dates: start: 20170803, end: 20170817
  53. GLUCOSAMINE CHONDROTIN [Concomitant]
     Active Substance: CHONDROITIN SULFATE (BOVINE)\GLUCOSAMINE SULFATE
     Indication: SUPPLEMENTATION THERAPY
     Route: 048
     Dates: start: 20170118
  54. GLUCOSAMINE CHONDROTIN [Concomitant]
     Active Substance: CHONDROITIN SULFATE (BOVINE)\GLUCOSAMINE SULFATE
     Dosage: 20 MILLIGRAM
     Route: 048
     Dates: start: 20170118
  55. TURMERIC [Concomitant]
     Active Substance: HERBALS\TURMERIC
     Dosage: 20 MILLIGRAM
     Route: 048
     Dates: start: 20170118
  56. PREMARIN [Concomitant]
     Active Substance: ESTROGENS, CONJUGATED
     Dosage: 20 MILLIGRAM
     Route: 048
     Dates: start: 20170118
  57. DIPHENHYDRAMINE. [Concomitant]
     Active Substance: DIPHENHYDRAMINE
     Indication: PRODUCT USED FOR UNKNOWN INDICATION
     Dosage: 25
     Route: 065
     Dates: start: 20170811, end: 20170815

REACTIONS (2)
  - Lumbosacral radiculopathy [Recovered/Resolved]
  - Normal pressure hydrocephalus [Recovered/Resolved]

NARRATIVE: CASE EVENT DATE: 20170712
